FAERS Safety Report 8920134 (Version 2)
Quarter: 2012Q4

REPORT INFORMATION
  Report Type: 
  Country: JP (occurrence: JP)
  Receive Date: 20121121
  Receipt Date: 20121129
  Transmission Date: 20130627
  Serious: Yes (Hospitalization, Other)
  Sender: FDA-Public Use
  Company Number: JP-PFIZER INC-2012287279

PATIENT
  Age: 52 Year
  Sex: Female
  Weight: 58.2 kg

DRUGS (7)
  1. AZULFIDINE EN [Suspect]
     Indication: RHEUMATOID ARTHRITIS
     Dosage: Unk
     Route: 048
     Dates: start: 20120817, end: 20121003
  2. CRAVIT [Suspect]
     Dosage: Unk
     Dates: start: 20121005
  3. ALLEGRA [Concomitant]
  4. CALONAL [Concomitant]
  5. BAKTAR [Concomitant]
  6. DECADRON [Concomitant]
  7. MEROPEN [Concomitant]

REACTIONS (7)
  - Neutropenia [Recovered/Resolved]
  - Pyrexia [Recovered/Resolved]
  - Erythema [Recovering/Resolving]
  - Pruritus generalised [Recovering/Resolving]
  - Lymphadenopathy [Unknown]
  - Genital swelling [Unknown]
  - Chromatopsia [Unknown]
